FAERS Safety Report 9419518 (Version 1)
Quarter: 2013Q3

REPORT INFORMATION
  Report Type: Spontaneous
  Country: GB (occurrence: GB)
  Receive Date: 20130725
  Receipt Date: 20130725
  Transmission Date: 20140515
  Serious: Yes (Other)
  Sender: FDA-Public Use
  Company Number: GB-PFIZER INC-2013214035

PATIENT
  Age: 28 Year
  Sex: Female

DRUGS (1)
  1. CHAMPIX [Suspect]
     Indication: SMOKING CESSATION THERAPY
     Dosage: A DOSE OF 1 MG UNIT DOSE, TAKE AS DIRECTED
     Route: 048
     Dates: end: 2013

REACTIONS (4)
  - Psychotic disorder [Not Recovered/Not Resolved]
  - Hallucinations, mixed [Unknown]
  - Condition aggravated [Unknown]
  - Anxiety [Unknown]
